FAERS Safety Report 8064983-3 (Version None)
Quarter: 2012Q1

REPORT INFORMATION
  Report Type: 
  Country: None (occurrence: None)
  Receive Date: 20120124
  Receipt Date: 20120117
  Transmission Date: 20120608
  Serious: No
  Sender: FDA-Public Use
  Company Number: US-BIOGENIDEC-2012BI002234

PATIENT
  Age: 27 Year
  Sex: Female

DRUGS (2)
  1. TYSABRI [Suspect]
     Indication: CROHN'S DISEASE
     Route: 042
     Dates: start: 20080326, end: 20081017
  2. TYSABRI [Suspect]
     Route: 042
     Dates: start: 20090416

REACTIONS (2)
  - THROAT TIGHTNESS [None]
  - BLOOD PRESSURE INCREASED [None]
